FAERS Safety Report 22114843 (Version 1)
Quarter: 2023Q1

REPORT INFORMATION
  Report Type: Spontaneous
  Country: RU (occurrence: RU)
  Receive Date: 20230320
  Receipt Date: 20230320
  Transmission Date: 20230417
  Serious: Yes (Hospitalization)
  Sender: FDA-Public Use
  Company Number: RU-drreddys-LIT/RUS/23/0162592

PATIENT
  Age: 11 Year
  Sex: Female
  Weight: 32.2 kg

DRUGS (25)
  1. ENALAPRIL [Interacting]
     Active Substance: ENALAPRIL
     Indication: Product used for unknown indication
  2. LEVOFLOXACIN [Suspect]
     Active Substance: LEVOFLOXACIN
     Indication: Antibiotic therapy
  3. PREDNISOLONE [Suspect]
     Active Substance: PREDNISOLONE
     Indication: Nephrotic syndrome
     Dosage: 2 MG/KG/DAY
     Dates: start: 20180402
  4. PREDNISOLONE [Suspect]
     Active Substance: PREDNISOLONE
     Dosage: REDUCED DOSE OF 42.2 MG/DAY.
  5. SPIRONOLACTONE [Interacting]
     Active Substance: SPIRONOLACTONE
     Indication: Product used for unknown indication
  6. RIFAMPIN [Suspect]
     Active Substance: RIFAMPIN
     Indication: Tuberculosis
     Route: 042
     Dates: start: 20180601, end: 20180626
  7. RIFAMPIN [Suspect]
     Active Substance: RIFAMPIN
     Dosage: 2 TABLETS OF 150MG ONCE DAILY
     Dates: start: 20180619, end: 20180626
  8. CYCLOSPORINE [Interacting]
     Active Substance: CYCLOSPORINE
     Indication: Nephrotic syndrome
     Dates: end: 20180707
  9. CYCLOSPORINE [Interacting]
     Active Substance: CYCLOSPORINE
     Dates: start: 20180614
  10. CYCLOSPORINE [Interacting]
     Active Substance: CYCLOSPORINE
     Dosage: WAS INCREASED TO 75 MG TWICE A DAY
     Dates: start: 20180615
  11. CYCLOSPORINE [Interacting]
     Active Substance: CYCLOSPORINE
     Dosage: INCREASED TO 100 MG TWICE DAILY.
     Dates: start: 20180621, end: 20180707
  12. METHYLPREDNISOLONE [Suspect]
     Active Substance: METHYLPREDNISOLONE
     Indication: Nephrotic syndrome
     Dates: start: 20180411, end: 20180413
  13. METHYLPREDNISOLONE [Suspect]
     Active Substance: METHYLPREDNISOLONE
     Dates: start: 20180614
  14. METHYLPREDNISOLONE [Suspect]
     Active Substance: METHYLPREDNISOLONE
     Dosage: INCREASED TO 75MG TWICE A DAY
     Dates: start: 20180615
  15. DIPYRIDAMOLE [Concomitant]
     Active Substance: DIPYRIDAMOLE
     Indication: Product used for unknown indication
  16. PENTOXIFYLLINE [Concomitant]
     Active Substance: PENTOXIFYLLINE
     Indication: Product used for unknown indication
  17. URSODIOL [Concomitant]
     Active Substance: URSODIOL
     Indication: Product used for unknown indication
  18. BROMHEXINE [Concomitant]
     Active Substance: BROMHEXINE
     Indication: Product used for unknown indication
  19. POTASSIUM ASPARTATE [Concomitant]
     Active Substance: POTASSIUM ASPARTATE
     Indication: Product used for unknown indication
  20. MAGNESIUM ASPARTATE [Concomitant]
     Active Substance: MAGNESIUM ASPARTATE
     Indication: Product used for unknown indication
  21. CALCIUM\CHOLECALCIFEROL [Concomitant]
     Active Substance: CALCIUM\CHOLECALCIFEROL
     Indication: Product used for unknown indication
  22. CLARITHROMYCIN [Concomitant]
     Active Substance: CLARITHROMYCIN
     Indication: Product used for unknown indication
  23. Fenoterol/ipratropium-bromide [Concomitant]
     Indication: Product used for unknown indication
  24. Dioxidin [Concomitant]
     Indication: Product used for unknown indication
  25. OMEPRAZOLE [Concomitant]
     Active Substance: OMEPRAZOLE
     Indication: Product used for unknown indication

REACTIONS (12)
  - Cushing^s syndrome [Unknown]
  - Chlamydial infection [Unknown]
  - Tuberculosis [Unknown]
  - Seizure [Recovered/Resolved]
  - Cerebral ischaemia [Unknown]
  - Pneumocystis jirovecii infection [Unknown]
  - Epilepsy [Unknown]
  - Drug level decreased [Unknown]
  - Bronchitis [Unknown]
  - Hypertension [Unknown]
  - Hyperkalaemia [Recovered/Resolved]
  - Drug interaction [Unknown]

NARRATIVE: CASE EVENT DATE: 20180601
